FAERS Safety Report 6415002-3 (Version None)
Quarter: 2009Q4

REPORT INFORMATION
  Report Type: 
  Country: None (occurrence: None)
  Receive Date: 20091026
  Receipt Date: 20091006
  Transmission Date: 20100525
  Serious: No
  Sender: FDA-Public Use
  Company Number: US-ABBOTT-09P-163-0601904-00

PATIENT
  Sex: Female
  Weight: 59.928 kg

DRUGS (4)
  1. LUPRON DEPOT [Suspect]
     Indication: POLYCYSTIC OVARIES
     Dates: start: 20090515
  2. LUPRON DEPOT [Suspect]
     Indication: ENDOMETRIOSIS
  3. SPIRONOLACTONE [Concomitant]
     Indication: DRUG USE FOR UNKNOWN INDICATION
  4. MINOCYCLINE [Concomitant]
     Indication: DRUG USE FOR UNKNOWN INDICATION

REACTIONS (1)
  - WEIGHT INCREASED [None]
